FAERS Safety Report 9263742 (Version 1)
Quarter: 2013Q2

REPORT INFORMATION
  Report Type: Report from Study
  Country: DE (occurrence: DE)
  Receive Date: 20130430
  Receipt Date: 20130430
  Transmission Date: 20140414
  Serious: Yes (Other)
  Sender: FDA-Public Use
  Company Number: PHHY2013DE035367

PATIENT
  Sex: Female

DRUGS (2)
  1. FTY 720 [Suspect]
     Indication: MULTIPLE SCLEROSIS
     Dosage: 0.5 MG, QD
     Route: 048
     Dates: start: 20130114
  2. FAMPYRA [Concomitant]
     Indication: GAIT DISTURBANCE
     Dosage: 10 MG, 2X1
     Route: 048
     Dates: start: 20110913, end: 20130121

REACTIONS (1)
  - Electrocardiogram QT prolonged [Recovered/Resolved]
